FAERS Safety Report 19325921 (Version 2)
Quarter: 2021Q2

REPORT INFORMATION
  Report Type: Spontaneous
  Country: FR (occurrence: FR)
  Receive Date: 20210528
  Receipt Date: 20210531
  Transmission Date: 20210717
  Serious: Yes (Life-Threatening)
  Sender: FDA-Public Use
  Company Number: FR-TEVA-2021-FR-1914267

PATIENT
  Age: 75 Year
  Sex: Male
  Weight: 80 kg

DRUGS (6)
  1. CLOPIDOGREL [Suspect]
     Active Substance: CLOPIDOGREL BISULFATE
     Indication: AORTIC ANEURYSM
     Dosage: 75 MG , THERAPY START DATE : ASKU
     Route: 048
     Dates: end: 20210426
  2. NEBIVOLOL. [Concomitant]
     Active Substance: NEBIVOLOL
     Dosage: 5 MG , THERAPY START DATE : ASKU
     Route: 048
     Dates: end: 20210426
  3. GLYZA [Concomitant]
     Dosage: 1 DF , THERAPY START DATE : ASKU
     Route: 048
     Dates: end: 20210426
  4. IRBESARTAN. [Concomitant]
     Active Substance: IRBESARTAN
     Dosage: 300 MG , THERAPY START DATE : ASKU
     Route: 048
     Dates: end: 20210426
  5. HYDROCHLORO [Concomitant]
     Dosage: 25 MG , THERAPY START DATE : ASKU
     Route: 048
     Dates: end: 20210426
  6. METFORMINE [Concomitant]
     Active Substance: METFORMIN HYDROCHLORIDE
     Dosage: 2000 MG , THERAPY START DATE : ASKU
     Route: 048
     Dates: end: 20210426

REACTIONS (3)
  - Drug ineffective [Recovering/Resolving]
  - Thrombosis [Recovering/Resolving]
  - Aortic aneurysm rupture [Recovering/Resolving]

NARRATIVE: CASE EVENT DATE: 20210424
